FAERS Safety Report 15755325 (Version 1)
Quarter: 2018Q4

REPORT INFORMATION
  Report Type: Spontaneous
  Country: US (occurrence: US)
  Receive Date: 20181221
  Receipt Date: 20181221
  Transmission Date: 20190205
  Serious: Yes (Other)
  Sender: FDA-Public Use
  Company Number: None

PATIENT
  Age: 6 Year
  Sex: Male
  Weight: 26.55 kg

DRUGS (5)
  1. PRILOSEC [Concomitant]
     Active Substance: OMEPRAZOLE MAGNESIUM
  2. FLOVENT [Concomitant]
     Active Substance: FLUTICASONE PROPIONATE
  3. TRANSDERM SCOP [Suspect]
     Active Substance: SCOPOLAMINE
     Indication: SALIVARY HYPERSECRETION
     Dosage: ?          QUANTITY:1 PATCH(ES);OTHER FREQUENCY:EVERY 72 HOURS;OTHER ROUTE:BEHIND EAR?
     Dates: start: 20181201, end: 20181203
  4. SINGULAIR [Concomitant]
     Active Substance: MONTELUKAST SODIUM
  5. ALBUTEROL. [Concomitant]
     Active Substance: ALBUTEROL

REACTIONS (5)
  - Amnesia [None]
  - Insomnia [None]
  - Abnormal behaviour [None]
  - Toxicity to various agents [None]
  - Hallucination [None]

NARRATIVE: CASE EVENT DATE: 20181202
